FAERS Safety Report 8947878 (Version 2)
Quarter: 2013Q1

REPORT INFORMATION
  Report Type: Spontaneous
  Country: US (occurrence: None)
  Receive Date: 20121127
  Receipt Date: 20121226
  Transmission Date: 20140127
  Serious: Yes (Disabling, Other)
  Sender: FDA-Public Use
  Company Number: ACO_33023_2012

PATIENT
  Age: 60 Year
  Sex: Female
  Weight: 59 kg

DRUGS (6)
  1. AMPYRA [Suspect]
     Indication: GAIT DISTURBANCE
     Route: 048
     Dates: start: 201211, end: 20121208
  2. AVONEX (INTERFERON BETA-1A) [Concomitant]
  3. CELEXA (CITALOPRAM HYDROBROMIDE) [Concomitant]
  4. TRAZODONE (TRAZODONE) [Concomitant]
  5. XANAX (ALPRAZOLAM) [Concomitant]
  6. MELOXICAM (MELOXICAM) [Concomitant]

REACTIONS (6)
  - Abasia [None]
  - Movement disorder [None]
  - Gait disturbance [None]
  - Asthenia [None]
  - Balance disorder [None]
  - Drug administration error [None]
